FAERS Safety Report 10771541 (Version 1)
Quarter: 2015Q1

REPORT INFORMATION
  Report Type: Spontaneous
  Country: US (occurrence: US)
  Receive Date: 20150206
  Receipt Date: 20150206
  Transmission Date: 20150721
  Serious: Yes (Other)
  Sender: FDA-Public Use
  Company Number: US-ACTAVIS-2015-01151

PATIENT
  Age: 4 Year
  Sex: Female

DRUGS (2)
  1. CYCLOSPORINE (WATSON LABORATORIES) [Suspect]
     Active Substance: CYCLOSPORINE
     Indication: DERMATITIS ATOPIC
     Dosage: UNK
     Route: 065
  2. PIMECROLIMUS [Suspect]
     Active Substance: PIMECROLIMUS
     Indication: DERMATITIS ATOPIC
     Dosage: 1%C CREAM
     Route: 061

REACTIONS (1)
  - Epidermodysplasia verruciformis [Recovered/Resolved]
